FAERS Safety Report 13551863 (Version 1)
Quarter: 2017Q2

REPORT INFORMATION
  Report Type: Spontaneous
  Country: AU (occurrence: AU)
  Receive Date: 20170516
  Receipt Date: 20170516
  Transmission Date: 20170830
  Serious: Yes (Other)
  Sender: FDA-Public Use
  Company Number: AU-CUMBERLAND PHARMACEUTICALS INC.-2020840

PATIENT
  Age: 22 Year
  Sex: Female

DRUGS (1)
  1. CALDOLOR [Suspect]
     Active Substance: IBUPROFEN
     Indication: PAIN
     Route: 040

REACTIONS (1)
  - Deep vein thrombosis [Recovered/Resolved]
